FAERS Safety Report 4468221-X (Version None)
Quarter: 2004Q4

REPORT INFORMATION
  Report Type: 
  Country: None (occurrence: None)
  Receive Date: 20041007
  Receipt Date: 20041001
  Transmission Date: 20050328
  Serious: Yes (Hospitalization, Disabling)
  Sender: FDA-Public Use
  Company Number: BR-MERCK-0410BRA00205

PATIENT
  Age: 49 Year
  Sex: Female

DRUGS (6)
  1. ACETAMINOPHEN [Concomitant]
     Indication: DENTAL OPERATION
     Route: 065
     Dates: start: 20040830
  2. MEFENAMIC ACID [Concomitant]
     Indication: DENTAL OPERATION
     Route: 065
     Dates: start: 20040830
  3. VIOXX [Suspect]
     Indication: PAIN
     Route: 048
     Dates: start: 20010101, end: 20040101
  4. VIOXX [Suspect]
     Route: 048
     Dates: start: 20040830, end: 20040901
  5. VIOXX [Suspect]
     Indication: DENTAL OPERATION
     Route: 048
     Dates: start: 20010101, end: 20040101
  6. VIOXX [Suspect]
     Route: 048
     Dates: start: 20040830, end: 20040901

REACTIONS (2)
  - C-REACTIVE PROTEIN INCREASED [None]
  - ISCHAEMIC STROKE [None]
